FAERS Safety Report 21109708 (Version 1)
Quarter: 2022Q3

REPORT INFORMATION
  Report Type: Spontaneous
  Country: US (occurrence: US)
  Receive Date: 20220721
  Receipt Date: 20220721
  Transmission Date: 20221027
  Serious: No
  Sender: FDA-Public Use
  Company Number: US-ALM-HQ-US-2022-1410

PATIENT
  Age: 65 Year
  Sex: Female
  Weight: 62.652 kg

DRUGS (1)
  1. KLISYRI [Suspect]
     Active Substance: TIRBANIBULIN
     Indication: Actinic keratosis
     Dates: start: 20220622, end: 20220628

REACTIONS (3)
  - Product use issue [Recovered/Resolved]
  - Application site erythema [Recovered/Resolved]
  - Application site exfoliation [Recovered/Resolved]

NARRATIVE: CASE EVENT DATE: 20220622
